FAERS Safety Report 10113353 (Version 2)
Quarter: 2015Q1

REPORT INFORMATION
  Report Type: Other
  Country: US (occurrence: US)
  Receive Date: 20140425
  Receipt Date: 20150204
  Transmission Date: 20150720
  Serious: Yes (Hospitalization, Other)
  Sender: FDA-Public Use
  Company Number: US-GSKPPD-2014GSK013930

PATIENT
  Age: 66 Year
  Sex: Male

DRUGS (7)
  1. NIACIN. [Concomitant]
     Active Substance: NIACIN
  2. BUMEX [Concomitant]
     Active Substance: BUMETANIDE
  3. ZETIA [Concomitant]
     Active Substance: EZETIMIBE
  4. TRICOR [Concomitant]
     Active Substance: FENOFIBRATE
  5. ASPIRIN. [Concomitant]
     Active Substance: ASPIRIN
  6. AVANDIA [Suspect]
     Active Substance: ROSIGLITAZONE MALEATE
     Indication: DIABETES MELLITUS
     Dosage: AVANDIA WAS NOT LISTED AMONG THE PATIENTS RECORDS REVIEWED.
     Route: 048
  7. COREG [Concomitant]
     Active Substance: CARVEDILOL

REACTIONS (3)
  - Tachyarrhythmia [Recovered/Resolved]
  - Left ventricular dysfunction [Recovered/Resolved]
  - Myocardial infarction [Unknown]

NARRATIVE: CASE EVENT DATE: 20080512
